FAERS Safety Report 9253385 (Version 1)
Quarter: 2013Q2

REPORT INFORMATION
  Report Type: Report from Study
  Country: DE (occurrence: DE)
  Receive Date: 20130425
  Receipt Date: 20130425
  Transmission Date: 20140414
  Serious: Yes (Hospitalization)
  Sender: FDA-Public Use
  Company Number: DE-ROCHE-1217963

PATIENT
  Age: 49 Year
  Sex: Female
  Weight: 93 kg

DRUGS (2)
  1. PEG-INTERFERON ALFA 2A [Suspect]
     Indication: CHRONIC HEPATITIS C
     Route: 058
     Dates: start: 20121214
  2. RIBAVIRIN [Suspect]
     Indication: CHRONIC HEPATITIS C
     Route: 065
     Dates: start: 20121214

REACTIONS (3)
  - Nausea [Recovering/Resolving]
  - Vomiting [Recovering/Resolving]
  - Mucosal dryness [Recovered/Resolved]
